FAERS Safety Report 23558644 (Version 1)
Quarter: 2024Q1

REPORT INFORMATION
  Report Type: Spontaneous
  Country: US (occurrence: None)
  Receive Date: 20240222
  Receipt Date: 20240222
  Transmission Date: 20240410
  Serious: Yes (Hospitalization)
  Sender: FDA-Public Use
  Company Number: None

PATIENT
  Sex: Female

DRUGS (17)
  1. NUCALA [Suspect]
     Active Substance: MEPOLIZUMAB
     Dosage: OTHER FREQUENCY : EVERY 30 DAYS;?
     Route: 058
  2. ALLERGRA [Concomitant]
  3. CALCIUM [Concomitant]
     Active Substance: CALCIUM
  4. PREDNIROLE [Concomitant]
  5. MONTELUKAST [Concomitant]
     Active Substance: MONTELUKAST SODIUM
  6. PREGABALIN [Concomitant]
  7. DULOXETINE [Concomitant]
  8. POT CL MICRO [Concomitant]
  9. LISINOPRIL [Concomitant]
     Active Substance: LISINOPRIL
  10. TOPIRAMATE [Concomitant]
     Active Substance: TOPIRAMATE
  11. SULINDAC [Concomitant]
     Active Substance: SULINDAC
  12. AZELASTINE [Concomitant]
     Active Substance: AZELASTINE\AZELASTINE HYDROCHLORIDE
  13. TRELEGY ELLIPTA [Concomitant]
     Active Substance: FLUTICASONE FUROATE\UMECLIDINIUM BROMIDE\VILANTEROL TRIFENATATE
  14. ATORVASTATIN [Concomitant]
  15. HYDROCHLOROTHIAZIDE [Concomitant]
     Active Substance: HYDROCHLOROTHIAZIDE
  16. OMEPRAZOLE [Concomitant]
     Active Substance: OMEPRAZOLE
  17. METFORMIN [Concomitant]

REACTIONS (1)
  - Impaired quality of life [None]
